FAERS Safety Report 19952651 (Version 1)
Quarter: 2021Q4

REPORT INFORMATION
  Report Type: Spontaneous
  Country: US (occurrence: US)
  Receive Date: 20211011
  Receipt Date: 20211011
  Transmission Date: 20220303
  Serious: No
  Sender: FDA-Public Use
  Company Number: None

PATIENT
  Sex: Female

DRUGS (1)
  1. NINLARO [Suspect]
     Active Substance: IXAZOMIB CITRATE
     Indication: Plasma cell myeloma
     Dosage: ?          OTHER FREQUENCY:DAY 1,8,15;
     Route: 048
     Dates: start: 202010

REACTIONS (5)
  - Paraesthesia [None]
  - Peripheral swelling [None]
  - Peripheral swelling [None]
  - Peripheral swelling [None]
  - Burning sensation [None]
